FAERS Safety Report 19048374 (Version 1)
Quarter: 2021Q1

REPORT INFORMATION
  Report Type: Spontaneous
  Country: GB (occurrence: GB)
  Receive Date: 20210323
  Receipt Date: 20210323
  Transmission Date: 20210420
  Serious: Yes (Other)
  Sender: FDA-Public Use
  Company Number: GB-SA-2021SA082343

PATIENT
  Age: 43 Year
  Sex: Female

DRUGS (19)
  1. EPIRUBICIN [Suspect]
     Active Substance: EPIRUBICIN
     Dosage: 180 MG, Q3W
     Route: 042
     Dates: start: 20180427, end: 20180427
  2. PERTUZUMAB. [Suspect]
     Active Substance: PERTUZUMAB
     Indication: BREAST CANCER METASTATIC
     Dosage: 420 MG/KG, Q3W
     Route: 042
     Dates: start: 20170412, end: 20170412
  3. DOCETAXEL. [Suspect]
     Active Substance: DOCETAXEL
     Dosage: 148 MG, Q3W
     Route: 042
     Dates: start: 20170412, end: 20170412
  4. EPIRUBICIN [Suspect]
     Active Substance: EPIRUBICIN
     Dosage: 140 MG, Q3W
     Route: 042
     Dates: start: 20180525, end: 20180525
  5. PERTUZUMAB. [Suspect]
     Active Substance: PERTUZUMAB
     Dosage: 420 MG/KG, Q3W
     Route: 042
     Dates: start: 20180112, end: 20180112
  6. DOCETAXEL. [Suspect]
     Active Substance: DOCETAXEL
     Indication: BREAST CANCER METASTATIC
     Dosage: 148 MG, Q3W
     Route: 042
     Dates: start: 20170412, end: 20170412
  7. PHOSPHATE SANDOZ [Concomitant]
     Active Substance: SODIUM PHOSPHATE, MONOBASIC, ANHYDROUS
     Dosage: UNK UNK, TID
     Route: 048
     Dates: start: 20200324, end: 20200328
  8. TRASTUZUMAB. [Suspect]
     Active Substance: TRASTUZUMAB
     Dosage: 483 MG/KG
     Route: 042
     Dates: start: 20170228
  9. PERTUZUMAB. [Suspect]
     Active Substance: PERTUZUMAB
     Indication: BREAST CANCER METASTATIC
     Dosage: 420 MG/KG, Q3W
     Route: 042
     Dates: start: 20170412, end: 20170412
  10. EPIRUBICIN [Suspect]
     Active Substance: EPIRUBICIN
     Indication: BREAST CANCER METASTATIC
     Dosage: 180 MG, Q3W
     Route: 042
     Dates: start: 20180223, end: 20180223
  11. EPIRUBICIN [Suspect]
     Active Substance: EPIRUBICIN
     Dosage: 140 MG, Q3W
     Route: 042
     Dates: start: 20180615, end: 20180615
  12. POTASSIUM CHLORIDE. [Concomitant]
     Active Substance: POTASSIUM CHLORIDE
     Indication: BLOOD POTASSIUM DECREASED
     Dosage: UNK UNK, TID
     Route: 048
     Dates: start: 20200324, end: 20200326
  13. DIFFLAM [BENZYDAMINE HYDROCHLORIDE] [Concomitant]
     Indication: MOUTH ULCERATION
     Dosage: UNK UNK, PRN
     Route: 048
     Dates: start: 20180313
  14. LACTULOSE. [Concomitant]
     Active Substance: LACTULOSE
     Indication: CONSTIPATION
     Dosage: 15 ML, QD
     Route: 048
     Dates: start: 20180315
  15. SENNA [Concomitant]
     Active Substance: SENNA LEAF\SENNOSIDES\SENNOSIDES A AND B
     Indication: CONSTIPATION
     Dosage: 15 MG, BID
     Route: 048
     Dates: start: 20180315
  16. DOCETAXEL. [Suspect]
     Active Substance: DOCETAXEL
     Dosage: 148 MG, Q3W
     Route: 042
     Dates: start: 20170614, end: 20170614
  17. CAPECITABINE. [Suspect]
     Active Substance: CAPECITABINE
     Indication: BREAST CANCER METASTATIC
     Dosage: 2000 MG, BID
     Route: 048
     Dates: start: 20200721
  18. TRASTUZUMAB. [Suspect]
     Active Substance: TRASTUZUMAB
     Indication: BREAST CANCER METASTATIC
     Dosage: 514.5 MG, QW
     Route: 042
     Dates: start: 20170412, end: 20170412
  19. CO?AMOXICLAV [AMOXICILLIN;CLAVULANATE POTASSIUM] [Concomitant]
     Active Substance: AMOXICILLIN\CLAVULANATE POTASSIUM
     Dosage: 625 MG, TID
     Route: 048
     Dates: start: 20200324, end: 20200328

REACTIONS (2)
  - Vascular device infection [Recovered/Resolved]
  - Lower respiratory tract infection [Recovered/Resolved]

NARRATIVE: CASE EVENT DATE: 20190402
